FAERS Safety Report 6785631-6 (Version None)
Quarter: 2010Q2

REPORT INFORMATION
  Report Type: 
  Country: None (occurrence: None)
  Receive Date: 20100623
  Receipt Date: 20100614
  Transmission Date: 20101027
  Serious: Yes (Other)
  Sender: FDA-Public Use
  Company Number: DE-JNJFOC-20100604683

PATIENT
  Age: 11 Year
  Sex: Male

DRUGS (2)
  1. CONCERTA [Suspect]
     Indication: ATTENTION DEFICIT/HYPERACTIVITY DISORDER
     Route: 048
  2. MESUXIMID [Interacting]
     Indication: DRUG USE FOR UNKNOWN INDICATION
     Route: 048

REACTIONS (8)
  - BILIRUBIN URINE [None]
  - DRUG INTERACTION [None]
  - HEADACHE [None]
  - NAUSEA [None]
  - PROCALCITONIN INCREASED [None]
  - RED BLOOD CELLS URINE [None]
  - URINE KETONE BODY PRESENT [None]
  - VOMITING [None]
